FAERS Safety Report 16799309 (Version 4)
Quarter: 2019Q4

REPORT INFORMATION
  Report Type: Spontaneous
  Country: US (occurrence: US)
  Receive Date: 20190912
  Receipt Date: 20191024
  Transmission Date: 20200122
  Serious: No
  Sender: FDA-Public Use
  Company Number: US-PFIZER INC-2019365573

PATIENT
  Age: 61 Year
  Sex: Male
  Weight: 96.16 kg

DRUGS (3)
  1. XANAX [Suspect]
     Active Substance: ALPRAZOLAM
     Indication: SPINAL PAIN
     Dosage: 2 MG, 3X/DAY
     Route: 048
     Dates: start: 201610
  2. XANAX [Suspect]
     Active Substance: ALPRAZOLAM
     Indication: SHOCK
  3. XANAX [Suspect]
     Active Substance: ALPRAZOLAM
     Indication: ANXIETY

REACTIONS (2)
  - Constipation [Unknown]
  - Overdose [Unknown]
